FAERS Safety Report 15402104 (Version 2)
Quarter: 2019Q1

REPORT INFORMATION
  Report Type: Spontaneous
  Country: US (occurrence: US)
  Receive Date: 20180919
  Receipt Date: 20190222
  Transmission Date: 20190417
  Serious: Yes (Other)
  Sender: FDA-Public Use
  Company Number: CN-ASTRAZENECA-2018SF19204

PATIENT
  Age: 69 Year
  Sex: Female
  Weight: 67.6 kg

DRUGS (9)
  1. NEXIUM 24HR [Suspect]
     Active Substance: ESOMEPRAZOLE MAGNESIUM
     Indication: OESOPHAGITIS
     Route: 048
     Dates: start: 20180901
  2. ESTER-C [ASCORBIC ACID] [Concomitant]
     Active Substance: ASCORBIC ACID
     Indication: ROUTINE HEALTH MAINTENANCE
     Route: 048
  3. CALCIUM CITRATE WITH VITAMIN D3 [Concomitant]
     Indication: BONE DISORDER
     Dosage: 2 DF, 2X/DAY (TAKES 2 TABLETS TWICE A DAY BY MOUTH)
     Route: 048
  4. NEXIUM 24HR [Suspect]
     Active Substance: ESOMEPRAZOLE MAGNESIUM
     Indication: GASTROOESOPHAGEAL REFLUX DISEASE
     Route: 048
     Dates: start: 20180901
  5. RECLAST [Suspect]
     Active Substance: ZOLEDRONIC ACID
     Indication: OSTEOPENIA
     Route: 042
     Dates: start: 20180828
  6. B50 COMPLEX [Concomitant]
     Indication: ROUTINE HEALTH MAINTENANCE
     Route: 048
  7. RECLAST [Suspect]
     Active Substance: ZOLEDRONIC ACID
     Indication: OSTEOPOROSIS
     Route: 042
     Dates: start: 20180828
  8. MULTIVITAMIN FOR WOMEN [Concomitant]
     Indication: ROUTINE HEALTH MAINTENANCE
     Route: 048
  9. OMEGA-3 FATTY ACIDS [Concomitant]
     Active Substance: OMEGA-3 FATTY ACIDS
     Indication: BLOOD CHOLESTEROL ABNORMAL
     Route: 048

REACTIONS (8)
  - Femur fracture [Unknown]
  - Gait disturbance [Unknown]
  - Intentional product misuse [Unknown]
  - Musculoskeletal discomfort [Not Recovered/Not Resolved]
  - Eye inflammation [Recovered/Resolved]
  - Medial tibial stress syndrome [Unknown]
  - Lower limb fracture [Unknown]
  - Ocular hyperaemia [Recovered/Resolved]

NARRATIVE: CASE EVENT DATE: 201809
